FAERS Safety Report 7732145-2 (Version None)
Quarter: 2011Q3

REPORT INFORMATION
  Report Type: 
  Country: None (occurrence: None)
  Receive Date: 20110906
  Receipt Date: 20110810
  Transmission Date: 20111222
  Serious: No
  Sender: FDA-Public Use
  Company Number: US-AMGEN-USASP2011040860

PATIENT
  Sex: Female

DRUGS (7)
  1. SYNTHROID [Concomitant]
  2. DIOVAN [Concomitant]
  3. PROLIA [Suspect]
     Indication: OSTEOPOROSIS POSTMENOPAUSAL
     Dosage: UNK UNK, Q6MO
     Dates: start: 20110117
  4. CALCIUM                            /06376801/ [Concomitant]
  5. MAGNESIUM [Concomitant]
  6. PLAVIX [Concomitant]
  7. VITAMIN D [Concomitant]

REACTIONS (4)
  - ERYTHEMA [None]
  - DIARRHOEA [None]
  - PRURITUS [None]
  - PAIN [None]
